FAERS Safety Report 24317960 (Version 1)
Quarter: 2024Q3

REPORT INFORMATION
  Report Type: Spontaneous
  Country: US (occurrence: US)
  Receive Date: 20240913
  Receipt Date: 20240913
  Transmission Date: 20241016
  Serious: Yes (Other)
  Sender: AMGEN
  Company Number: US-AMGEN-USASP2024178512

PATIENT
  Age: 71 Year
  Sex: Female

DRUGS (1)
  1. MVASI [Suspect]
     Active Substance: BEVACIZUMAB-AWWB
     Indication: Product used for unknown indication
     Dosage: UNK
     Route: 065
     Dates: start: 202301

REACTIONS (3)
  - Acute kidney injury [Unknown]
  - Haemorrhagic stroke [Not Recovered/Not Resolved]
  - Hydronephrosis [Not Recovered/Not Resolved]

NARRATIVE: CASE EVENT DATE: 20240805
